FAERS Safety Report 21754405 (Version 1)
Quarter: 2022Q4

REPORT INFORMATION
  Report Type: Spontaneous
  Country: MY (occurrence: MY)
  Receive Date: 20221220
  Receipt Date: 20221220
  Transmission Date: 20230112
  Serious: Yes (Other)
  Sender: FDA-Public Use
  Company Number: MY-PFIZER INC-PV202200124958

PATIENT
  Age: 15 Year
  Sex: Male

DRUGS (1)
  1. MEROPENEM [Suspect]
     Active Substance: MEROPENEM
     Indication: Antibiotic therapy
     Dosage: 500 MG, 3X/DAY (500 MG MILLIGRAM(S) EVERY 8 HOUR(S))
     Route: 042

REACTIONS (1)
  - Rash maculo-papular [Recovered/Resolved]
